FAERS Safety Report 7503411-0 (Version None)
Quarter: 2011Q2

REPORT INFORMATION
  Report Type: 
  Country: None (occurrence: None)
  Receive Date: 20110525
  Receipt Date: 20110519
  Transmission Date: 20111010
  Serious: Yes (Hospitalization)
  Sender: FDA-Public Use
  Company Number: B0720280A

PATIENT
  Sex: Male

DRUGS (7)
  1. MINI-SINTROM [Concomitant]
     Route: 065
  2. PAROXETINE HCL [Suspect]
     Dosage: 20MG PER DAY
     Route: 048
     Dates: end: 20110301
  3. BISOPROLOL FUMARATE [Concomitant]
     Route: 065
  4. OGAST [Concomitant]
     Dosage: 15MG PER DAY
     Route: 065
  5. LASIX [Concomitant]
     Dosage: 20MG PER DAY
     Route: 065
  6. LEXOMIL [Suspect]
     Dosage: 3MG PER DAY
     Route: 048
     Dates: start: 20110201, end: 20110303
  7. ASPIRIN [Concomitant]
     Dosage: 75MG PER DAY
     Route: 065

REACTIONS (3)
  - DISORIENTATION [None]
  - CARDIAC FAILURE [None]
  - CONFUSIONAL STATE [None]
